FAERS Safety Report 23387018 (Version 2)
Quarter: 2024Q1

REPORT INFORMATION
  Report Type: Report from Study
  Country: US (occurrence: US)
  Receive Date: 20240110
  Receipt Date: 20240327
  Transmission Date: 20240410
  Serious: Yes (Hospitalization, Other)
  Sender: FDA-Public Use
  Company Number: US-ABBVIE-5319672

PATIENT
  Age: 61 Year
  Sex: Female
  Weight: 70 kg

DRUGS (4)
  1. HUMIRA [Suspect]
     Active Substance: ADALIMUMAB
     Indication: Crohn^s disease
     Dosage: FORM STRENGTH: 40 MILLIGRAM?CITRATE FREE
     Route: 058
     Dates: start: 20211006
  2. HUMIRA [Suspect]
     Active Substance: ADALIMUMAB
     Dosage: FORM STRENGTH: 40 MG?CITRATE FREE
     Route: 058
  3. HUMIRA [Suspect]
     Active Substance: ADALIMUMAB
     Dosage: FORM STRENGTH: 40 MG?CITRATE FREE
     Route: 058
  4. HUMIRA [Suspect]
     Active Substance: ADALIMUMAB
     Dosage: FORM STRENGTH: 40 MILLIGRAM?CITRATE FREE?LAST ADMIN DATE: 2024
     Route: 058
     Dates: start: 20240103

REACTIONS (13)
  - Fistula [Unknown]
  - Chills [Unknown]
  - Blood magnesium decreased [Unknown]
  - Abscess intestinal [Recovered/Resolved]
  - Hypotension [Unknown]
  - Blood pressure increased [Unknown]
  - Hospitalisation [Unknown]
  - Blood potassium decreased [Unknown]
  - Dizziness [Unknown]
  - Feeding disorder [Unknown]
  - Abscess intestinal [Recovering/Resolving]
  - Fluid intake reduced [Unknown]
  - Hospitalisation [Unknown]

NARRATIVE: CASE EVENT DATE: 20230401
